FAERS Safety Report 5026438-X (Version None)
Quarter: 2006Q2

REPORT INFORMATION
  Report Type: 
  Country: None (occurrence: None)
  Receive Date: 20060613
  Receipt Date: 20060613
  Transmission Date: 20061013
  Serious: Yes (Other)
  Sender: FDA-Public Use
  Company Number: None

PATIENT
  Sex: Female

DRUGS (1)
  1. TRIAZ   6%   PAD BY MEDICIS [Suspect]
     Indication: ACNE

REACTIONS (2)
  - ACCIDENTAL EXPOSURE [None]
  - SUPRAVENTRICULAR TACHYCARDIA [None]
